FAERS Safety Report 5631534-X (Version None)
Quarter: 2008Q1

REPORT INFORMATION
  Report Type: 
  Country: None (occurrence: None)
  Receive Date: 20080215
  Receipt Date: 20080204
  Transmission Date: 20080703
  Serious: Yes (Hospitalization, Other)
  Sender: FDA-Public Use
  Company Number: 231297J08USA

PATIENT
  Age: 60 Year
  Sex: Female
  Weight: 108.8633 kg

DRUGS (12)
  1. REBIF [Suspect]
     Indication: MULTIPLE SCLEROSIS
     Dosage: 44 MCG, 3 IN 1 WEEKS, SUBCUTANEOUS
     Route: 058
     Dates: start: 20070501
  2. LISINOPRIL [Concomitant]
  3. BENICAR [Concomitant]
  4. COREG [Concomitant]
  5. DYNACIRC [Concomitant]
  6. PREMARIN [Concomitant]
  7. ATARAX [Concomitant]
  8. CYMBALTA [Concomitant]
  9. TIZANIDINE HCL [Concomitant]
  10. DETROL [Concomitant]
  11. LESCOL [Concomitant]
  12. GLUMETZA (ALL OTHER THERAPEUTIC PRODUCTS) [Concomitant]

REACTIONS (2)
  - COLITIS ISCHAEMIC [None]
  - RHEUMATOID ARTHRITIS [None]
